FAERS Safety Report 4584761-7 (Version None)
Quarter: 2005Q1

REPORT INFORMATION
  Report Type: 
  Country: None (occurrence: None)
  Receive Date: 20050217
  Receipt Date: 20050210
  Transmission Date: 20050727
  Serious: Yes (Hospitalization)
  Sender: FDA-Public Use
  Company Number: PHRM2005FR00787

PATIENT
  Age: 41 Year
  Sex: Male

DRUGS (2)
  1. LAMISIL [Suspect]
     Dosage: 250 MG, QD
     Route: 048
     Dates: start: 20040608, end: 20041114
  2. COVERSYL [Suspect]
     Dosage: 4 MG, QD
     Route: 048
     Dates: start: 20040929, end: 20041114

REACTIONS (14)
  - ALANINE AMINOTRANSFERASE INCREASED [None]
  - CATHETER RELATED INFECTION [None]
  - CHILLS [None]
  - CYTOLYTIC HEPATITIS [None]
  - DRUG HYPERSENSITIVITY [None]
  - EOSINOPHILIA [None]
  - LYMPHADENOPATHY [None]
  - MUCOUS MEMBRANE DISORDER [None]
  - OEDEMA PERIPHERAL [None]
  - PRURITUS [None]
  - PYREXIA [None]
  - RASH PSORIAFORM [None]
  - TOXIC SKIN ERUPTION [None]
  - URINARY TRACT INFECTION [None]
